FAERS Safety Report 13255979 (Version 6)
Quarter: 2017Q3

REPORT INFORMATION
  Report Type: Report from Study
  Country: US (occurrence: US)
  Receive Date: 20170221
  Receipt Date: 20170911
  Transmission Date: 20171127
  Serious: Yes (Hospitalization)
  Sender: FDA-Public Use
  Company Number: US-JNJFOC-20170214381

PATIENT
  Age: 17 Year
  Sex: Female
  Weight: 58.06 kg

DRUGS (2)
  1. REMICADE [Suspect]
     Active Substance: INFLIXIMAB
     Indication: INFLAMMATORY BOWEL DISEASE
     Route: 042
     Dates: start: 20121025
  2. 6-MP [Concomitant]
     Active Substance: MERCAPTOPURINE
     Route: 065

REACTIONS (2)
  - Epstein-Barr virus infection [Recovering/Resolving]
  - Spinal fusion surgery [Recovered/Resolved with Sequelae]

NARRATIVE: CASE EVENT DATE: 20160929
